FAERS Safety Report 12613064 (Version 1)
Quarter: 2016Q3

REPORT INFORMATION
  Report Type: Report from Study
  Country: US (occurrence: US)
  Receive Date: 20160802
  Receipt Date: 20160802
  Transmission Date: 20161109
  Serious: Yes (Death, Hospitalization, Other)
  Sender: FDA-Public Use
  Company Number: US-ROCHE-1002280

PATIENT
  Age: 62 Year
  Sex: Male
  Weight: 75 kg

DRUGS (1)
  1. VISMODEGIB [Suspect]
     Active Substance: VISMODEGIB
     Indication: NEOPLASM
     Dosage: TOTAL DOSE ADMINISTERED OF VISMODEGIB WAS 3750 MG
     Route: 048
     Dates: start: 20110817, end: 20110917

REACTIONS (3)
  - Hyperglycaemia [Unknown]
  - Neoplasm [Fatal]
  - Hypophosphataemia [Unknown]

NARRATIVE: CASE EVENT DATE: 20110917
